FAERS Safety Report 7625714-1 (Version None)
Quarter: 2011Q3

REPORT INFORMATION
  Report Type: 
  Country: None (occurrence: None)
  Receive Date: 20110721
  Receipt Date: 20110711
  Transmission Date: 20111222
  Serious: Yes (Other)
  Sender: FDA-Public Use
  Company Number: DE-MPIJNJ-2011-03008

PATIENT

DRUGS (2)
  1. VELCADE [Suspect]
     Indication: MULTIPLE MYELOMA
     Dosage: UNK
     Route: 042
     Dates: start: 20110301
  2. BENDAMUSTINE [Concomitant]

REACTIONS (3)
  - SERUM SICKNESS [None]
  - CONVULSION [None]
  - HYPERSENSITIVITY [None]
